FAERS Safety Report 25360506 (Version 1)
Quarter: 2025Q2

REPORT INFORMATION
  Report Type: Spontaneous
  Country: US (occurrence: US)
  Receive Date: 20250527
  Receipt Date: 20250527
  Transmission Date: 20250717
  Serious: No
  Sender: AUROBINDO
  Company Number: US-AUROBINDO-AUR-APL-2024-023382

PATIENT
  Age: 72 Year
  Sex: Female
  Weight: 52.616 kg

DRUGS (1)
  1. LORATADINE [Suspect]
     Active Substance: LORATADINE
     Indication: Product used for unknown indication
     Route: 048
     Dates: start: 20240504

REACTIONS (1)
  - Hyperglycaemia [Unknown]
